FAERS Safety Report 5639118-4 (Version None)
Quarter: 2008Q1

REPORT INFORMATION
  Report Type: 
  Country: None (occurrence: None)
  Receive Date: 20080226
  Receipt Date: 20080215
  Transmission Date: 20080703
  Serious: Yes (Life-Threatening)
  Sender: FDA-Public Use
  Company Number: CA-ELI_LILLY_AND_COMPANY-CA200801003499

PATIENT
  Age: 14 Year
  Sex: Male

DRUGS (8)
  1. STRATTERA [Suspect]
     Indication: ANXIETY
     Dosage: 18 MG, UNK
     Route: 048
     Dates: start: 20070401
  2. STRATTERA [Suspect]
     Dosage: 25 MG, UNK
  3. STRATTERA [Suspect]
     Dosage: 40 MG, UNK
     Dates: end: 20071214
  4. SEROQUEL [Concomitant]
  5. CONCERTA [Concomitant]
  6. EPIVAL [Concomitant]
  7. WELLBUTRIN [Concomitant]
  8. CLONIDINE [Concomitant]

REACTIONS (1)
  - ELECTROCARDIOGRAM QT PROLONGED [None]
